FAERS Safety Report 11757705 (Version 1)
Quarter: 2015Q4

REPORT INFORMATION
  Report Type: Spontaneous
  Country: US (occurrence: US)
  Receive Date: 20151120
  Receipt Date: 20151120
  Transmission Date: 20160304
  Serious: No
  Sender: FDA-Public Use
  Company Number: US-BIOGENIDEC-2015BI153476

PATIENT
  Sex: Female

DRUGS (1)
  1. TECFIDERA [Suspect]
     Active Substance: DIMETHYL FUMARATE
     Indication: MULTIPLE SCLEROSIS
     Dates: start: 20140729

REACTIONS (5)
  - Arthralgia [Not Recovered/Not Resolved]
  - Intervertebral disc degeneration [Unknown]
  - Myalgia [Not Recovered/Not Resolved]
  - Arthritis [Unknown]
  - Crepitations [Unknown]
